FAERS Safety Report 7706386-4 (Version None)
Quarter: 2011Q3

REPORT INFORMATION
  Report Type: 
  Country: None (occurrence: None)
  Receive Date: 20110824
  Receipt Date: 20110413
  Transmission Date: 20111222
  Serious: Yes (Other)
  Sender: FDA-Public Use
  Company Number: US-BAYER-2011-033099

PATIENT
  Age: 39 Year
  Sex: Female

DRUGS (2)
  1. MIRENA [Suspect]
     Indication: CONTRACEPTION
     Dosage: 20 MCG/24HR, CONT
     Route: 015
     Dates: start: 20110405, end: 20110413
  2. MIRENA [Suspect]
     Indication: MENORRHAGIA

REACTIONS (5)
  - ARTHRALGIA [None]
  - PAIN [None]
  - PRURITUS GENERALISED [None]
  - RASH [None]
  - DERMATITIS ALLERGIC [None]
